FAERS Safety Report 7142312-7 (Version None)
Quarter: 2010Q4

REPORT INFORMATION
  Report Type: 
  Country: None (occurrence: None)
  Receive Date: 20101112
  Receipt Date: 20100823
  Transmission Date: 20110411
  Serious: No
  Sender: FDA-Public Use
  Company Number: 1000015886

PATIENT
  Age: 51 Year
  Sex: Female

DRUGS (7)
  1. SAVELLA [Suspect]
     Indication: FIBROMYALGIA
     Dosage: SEE IMAGE; ORAL
     Route: 048
     Dates: start: 20100815, end: 20100815
  2. SAVELLA [Suspect]
     Indication: FIBROMYALGIA
     Dosage: SEE IMAGE; ORAL
     Route: 048
     Dates: start: 20100816, end: 20100817
  3. SAVELLA [Suspect]
     Indication: FIBROMYALGIA
     Dosage: SEE IMAGE; ORAL
     Route: 048
     Dates: start: 20100818, end: 20100821
  4. SAVELLA [Suspect]
     Indication: FIBROMYALGIA
     Dosage: SEE IMAGE; ORAL
     Route: 048
     Dates: start: 20100822
  5. XANAX [Concomitant]
  6. NORCO [Concomitant]
  7. LORAZEPAM [Concomitant]

REACTIONS (5)
  - DYSPHAGIA [None]
  - HEADACHE [None]
  - HYPOAESTHESIA ORAL [None]
  - RASH [None]
  - URTICARIA [None]
